FAERS Safety Report 7220927-5 (Version None)
Quarter: 2011Q1

REPORT INFORMATION
  Report Type: 
  Country: None (occurrence: None)
  Receive Date: 20110112
  Receipt Date: 20110103
  Transmission Date: 20110831
  Serious: Yes (Death, Hospitalization, Other)
  Sender: FDA-Public Use
  Company Number: US-ELI_LILLY_AND_COMPANY-US201101000561

PATIENT
  Sex: Female

DRUGS (5)
  1. ASPIRIN [Concomitant]
     Dosage: 81 MG, UNK
  2. COUMADIN [Concomitant]
  3. FORTEO [Suspect]
     Indication: OSTEOPOROSIS
     Dosage: 20 UG, DAILY (1/D)
     Dates: start: 20100914
  4. TOPROL-XL [Concomitant]
  5. DIGOXIN [Concomitant]

REACTIONS (10)
  - LIMB INJURY [None]
  - CEREBROVASCULAR ACCIDENT [None]
  - HAEMATOMA [None]
  - MYOCARDIAL INFARCTION [None]
  - COMA [None]
  - APHAGIA [None]
  - APHASIA [None]
  - WOUND [None]
  - FALL [None]
  - IMPAIRED HEALING [None]
